FAERS Safety Report 21790553 (Version 1)
Quarter: 2022Q4

REPORT INFORMATION
  Report Type: Spontaneous
  Country: JP (occurrence: JP)
  Receive Date: 20221228
  Receipt Date: 20221228
  Transmission Date: 20230113
  Serious: Yes (Other)
  Sender: FDA-Public Use
  Company Number: JP-OTSUKA-2022_055969

PATIENT

DRUGS (3)
  1. ABILIFY [Suspect]
     Active Substance: ARIPIPRAZOLE
     Indication: Schizophrenia
     Dosage: UNK
     Route: 064
  2. ETHYL LOFLAZEPATE [Suspect]
     Active Substance: ETHYL LOFLAZEPATE
     Indication: Schizophrenia
     Dosage: UNK
     Route: 064
  3. OLANZAPINE [Suspect]
     Active Substance: OLANZAPINE
     Indication: Schizophrenia
     Dosage: UNK
     Route: 064

REACTIONS (5)
  - Patent ductus arteriosus [Recovering/Resolving]
  - Pulmonary hypertension [Recovering/Resolving]
  - Hyperbilirubinaemia [Unknown]
  - Finnegan score increased [Recovering/Resolving]
  - Foetal exposure during pregnancy [Unknown]
